FAERS Safety Report 12818676 (Version 1)
Quarter: 2016Q4

REPORT INFORMATION
  Report Type: Spontaneous
  Country: US (occurrence: US)
  Receive Date: 20161005
  Receipt Date: 20161005
  Transmission Date: 20170207
  Serious: Yes (Life-Threatening, Hospitalization)
  Sender: FDA-Public Use
  Company Number: None

PATIENT
  Age: 4 Month
  Sex: Female
  Weight: 76.5 kg

DRUGS (1)
  1. TERBINAFINE ORAL TABLET [Suspect]
     Active Substance: TERBINAFINE
     Indication: ONYCHOMYCOSIS
     Route: 048
     Dates: start: 20160708, end: 20160824

REACTIONS (10)
  - Pericardial effusion [None]
  - Pain in extremity [None]
  - Hepatic enzyme increased [None]
  - Pyrexia [None]
  - Painful respiration [None]
  - Costochondritis [None]
  - Chest pain [None]
  - Atelectasis [None]
  - Pleurisy [None]
  - Pneumonia [None]

NARRATIVE: CASE EVENT DATE: 20160824
